FAERS Safety Report 26112261 (Version 1)
Quarter: 2025Q4

REPORT INFORMATION
  Report Type: Spontaneous
  Country: US (occurrence: None)
  Receive Date: 20251201
  Receipt Date: 20251201
  Transmission Date: 20260117
  Serious: Yes (Other)
  Sender: FDA-CTU
  Company Number: None

PATIENT
  Age: 59 Year
  Sex: Female
  Weight: 129.6 kg

DRUGS (1)
  1. OZEMPIC [Suspect]
     Active Substance: SEMAGLUTIDE
     Indication: Type 2 diabetes mellitus
     Dosage: OTHER QUANTITY : 1.0 INJECTION(S);?OTHER FREQUENCY : ONCE WEEKLY;?
     Route: 058

REACTIONS (3)
  - Dyspepsia [None]
  - Therapy change [None]
  - Nausea [None]

NARRATIVE: CASE EVENT DATE: 20251126
